FAERS Safety Report 18981999 (Version 2)
Quarter: 2021Q1

REPORT INFORMATION
  Report Type: Spontaneous
  Country: DE (occurrence: DE)
  Receive Date: 20210308
  Receipt Date: 20210326
  Transmission Date: 20210420
  Serious: Yes (Other)
  Sender: FDA-Public Use
  Company Number: DE-TAKEDA-2021TUS011603

PATIENT

DRUGS (9)
  1. SODIUM CITRATE. [Suspect]
     Active Substance: SODIUM CITRATE
     Indication: DRUG THERAPY
     Dosage: 30 ML (0.3 MOLAR)
     Route: 064
  2. RISPERIDONE. [Suspect]
     Active Substance: RISPERIDONE
     Indication: SCHIZOAFFECTIVE DISORDER
     Dosage: 7 MILLIGRAM, QD
     Route: 064
  3. QUETIAPINE. [Suspect]
     Active Substance: QUETIAPINE
     Indication: SCHIZOAFFECTIVE DISORDER
     Dosage: 1000 MILLIGRAM, QD
     Route: 064
  4. METHOHEXITAL [Suspect]
     Active Substance: METHOHEXITAL
     Indication: ANAESTHESIA
     Dosage: 1 MG/KG
     Route: 064
  5. METHOHEXITAL [Suspect]
     Active Substance: METHOHEXITAL
     Dosage: 1.6 MG/KG
     Route: 042
  6. GLYCOPYRRONIUM BROMIDE [Suspect]
     Active Substance: GLYCOPYRRONIUM
     Indication: PROPHYLAXIS
     Dosage: 0.2 MG
     Route: 064
  7. SUXAMETHONIUM [Suspect]
     Active Substance: SUCCINYLCHOLINE
     Indication: MUSCLE RELAXANT THERAPY
     Dosage: 1.5 MG/KG
     Route: 064
  8. DIAZEPAM. [Suspect]
     Active Substance: DIAZEPAM
     Indication: SCHIZOAFFECTIVE DISORDER
     Dosage: 30 MILLIGRAM, QD
     Route: 064
  9. QUETIAPINE. [Suspect]
     Active Substance: QUETIAPINE
     Dosage: 700 MILLIGRAM, QD
     Route: 064

REACTIONS (2)
  - Bradycardia foetal [Unknown]
  - Foetal exposure during pregnancy [Unknown]
